FAERS Safety Report 9172599 (Version 1)
Quarter: 2012Q4

REPORT INFORMATION
  Report Type: 
  Country: MX (occurrence: MX)
  Receive Date: 20120911
  Receipt Date: 20120911
  Transmission Date: 20130627
  Serious: Yes (Death)
  Sender: FDA-Public Use
  Company Number: PHHY2012MX078839

PATIENT
  Sex: Female

DRUGS (2)
  1. FORADIL [Suspect]
     Indication: ASTHMA
     Dosage: 12 ug, UNK
     Dates: start: 20110221
  2. FORADIL [Suspect]
     Indication: PULMONARY FIBROSIS

REACTIONS (1)
  - Pulmonary fibrosis [Fatal]
